FAERS Safety Report 15532150 (Version 1)
Quarter: 2018Q4

REPORT INFORMATION
  Report Type: Report from Study
  Country: US (occurrence: US)
  Receive Date: 20181019
  Receipt Date: 20181019
  Transmission Date: 20190205
  Serious: Yes (Death)
  Sender: FDA-Public Use
  Company Number: US-ROCHE-2189373

PATIENT
  Sex: Female
  Weight: 129 kg

DRUGS (3)
  1. AMITRIPTYLINE [Concomitant]
     Active Substance: AMITRIPTYLINE
     Dosage: AT BED TIME FOR SLEEP MAINTENANCE
     Route: 065
  2. OCREVUS [Suspect]
     Active Substance: OCRELIZUMAB
     Indication: RELAPSING-REMITTING MULTIPLE SCLEROSIS
     Route: 065
     Dates: start: 20170801, end: 201806
  3. BACLOFEN. [Concomitant]
     Active Substance: BACLOFEN
     Dosage: AS NEEDED
     Route: 065

REACTIONS (1)
  - Death [Fatal]
